FAERS Safety Report 7496388-8 (Version None)
Quarter: 2011Q2

REPORT INFORMATION
  Report Type: 
  Country: None (occurrence: None)
  Receive Date: 20110513
  Receipt Date: 20110509
  Transmission Date: 20111010
  Serious: Yes (Death, Hospitalization)
  Sender: FDA-Public Use
  Company Number: 2010AC000193

PATIENT
  Age: 29 Year
  Sex: Male

DRUGS (15)
  1. DIGOXIN [Suspect]
     Dosage: 0.125 MG;QD;PO
     Route: 048
     Dates: start: 20060614, end: 20061108
  2. LACTULOSE [Concomitant]
  3. ALBUTEROL SULFATE AUTOHALER [Concomitant]
  4. LEXAPRO [Concomitant]
  5. COREG [Concomitant]
  6. PROTONIX [Concomitant]
  7. FLOVENT [Concomitant]
  8. CARAFATE [Concomitant]
  9. FUROSEMIDE [Concomitant]
  10. ZOSYN [Concomitant]
  11. AMIODARONE HCL [Concomitant]
  12. VANCOMYCIN [Concomitant]
  13. LOVENOX [Concomitant]
  14. K-LYTE [Concomitant]
  15. CLINDAMYCIN [Concomitant]

REACTIONS (32)
  - FEAR OF DEATH [None]
  - HYPOXIC-ISCHAEMIC ENCEPHALOPATHY [None]
  - PULMONARY EMBOLISM [None]
  - CARDIAC ARREST [None]
  - PLEURAL EFFUSION [None]
  - BLOOD PRESSURE FLUCTUATION [None]
  - MENTAL DISORDER [None]
  - CARDIOMEGALY [None]
  - RESPIRATORY FAILURE [None]
  - NAUSEA [None]
  - EMOTIONAL DISORDER [None]
  - HYPOTENSION [None]
  - ECONOMIC PROBLEM [None]
  - VOMITING [None]
  - HEART RATE IRREGULAR [None]
  - SPUTUM CULTURE POSITIVE [None]
  - ACINETOBACTER TEST POSITIVE [None]
  - BRADYCARDIA [None]
  - MULTIPLE INJURIES [None]
  - BRAIN INJURY [None]
  - CARDIAC FAILURE CONGESTIVE [None]
  - PYREXIA [None]
  - CANDIDA TEST POSITIVE [None]
  - CARDIOMYOPATHY [None]
  - AMMONIA INCREASED [None]
  - PERICARDIAL EFFUSION [None]
  - CARDIAC DISORDER [None]
  - COMA [None]
  - LYMPHADENOPATHY [None]
  - ADHESION [None]
  - CULTURE URINE POSITIVE [None]
  - DEPRESSION [None]
